FAERS Safety Report 8469388-9 (Version None)
Quarter: 2012Q2

REPORT INFORMATION
  Report Type: 
  Country: None (occurrence: None)
  Receive Date: 20120626
  Receipt Date: 20120623
  Transmission Date: 20120825
  Serious: Yes (Hospitalization)
  Sender: FDA-Public Use
  Company Number: IT-PFIZER INC-2012151748

PATIENT
  Age: 39 Year
  Sex: Female

DRUGS (5)
  1. SOLU-MEDROL [Suspect]
     Dosage: 125 MG, 1X/DAY
     Route: 030
     Dates: start: 20120323
  2. LEVOTHYROXINE SODIUM [Concomitant]
     Dosage: UNK
  3. INDERAL [Concomitant]
     Dosage: UNK
  4. DIANE [Concomitant]
     Dosage: UNK
  5. ALLOPURINOL [Concomitant]
     Dosage: UNK

REACTIONS (3)
  - ABASIA [None]
  - MUSCULAR WEAKNESS [None]
  - ASTHENIA [None]
